FAERS Safety Report 9778981 (Version 2)
Quarter: 2014Q1

REPORT INFORMATION
  Report Type: Spontaneous
  Country: IT (occurrence: IT)
  Receive Date: 20131223
  Receipt Date: 20140207
  Transmission Date: 20141002
  Serious: Yes (Hospitalization)
  Sender: FDA-Public Use
  Company Number: IT-B.I. PHARMACEUTICALS,INC./RIDGEFIELD-2013-BI-42649IT

PATIENT
  Age: 79 Year
  Sex: Female
  Weight: 49 kg

DRUGS (4)
  1. MOBIC [Suspect]
     Indication: ARTHRALGIA
     Dosage: 7.5 MG
     Route: 048
     Dates: start: 20131101, end: 20131110
  2. OKI [Suspect]
     Indication: ARTHRALGIA
     Dosage: 160 MG
     Route: 048
     Dates: start: 20131103, end: 20131110
  3. TONACAL D3 [Concomitant]
     Indication: OSTEOPOROSIS
     Dosage: 600MG/400IU,
  4. ALENDROS [Concomitant]
     Indication: OSTEOPOROSIS
     Dosage: 70 MG
     Route: 048

REACTIONS (2)
  - Immune thrombocytopenic purpura [Recovered/Resolved]
  - Drug interaction [Recovered/Resolved]
